FAERS Safety Report 6172667-1 (Version None)
Quarter: 2009Q2

REPORT INFORMATION
  Report Type: 
  Country: None (occurrence: None)
  Receive Date: 20090430
  Receipt Date: 20090421
  Transmission Date: 20091009
  Serious: Yes (Death)
  Sender: FDA-Public Use
  Company Number: RU-JNJFOC-20090405001

PATIENT
  Sex: Male
  Weight: 70 kg

DRUGS (9)
  1. DORIPENEM [Suspect]
     Indication: SYSTEMIC INFLAMMATORY RESPONSE SYNDROME
     Route: 041
  2. PLASMA [Concomitant]
     Indication: HAEMORRHAGE
     Route: 042
  3. CEFOTAXIME [Concomitant]
     Indication: INFECTION
  4. WHOLE BLOOD [Concomitant]
     Indication: HAEMORRHAGE
     Route: 042
  5. RINGER'S [Concomitant]
     Indication: DRUG USE FOR UNKNOWN INDICATION
  6. HEPARIN [Concomitant]
     Indication: DRUG USE FOR UNKNOWN INDICATION
  7. FLUCONAZOLE [Concomitant]
     Indication: DRUG USE FOR UNKNOWN INDICATION
  8. FUROSEMIDE [Concomitant]
     Indication: DRUG USE FOR UNKNOWN INDICATION
  9. VANCOMYCIN HCL [Concomitant]
     Indication: MITRAL VALVE PROLAPSE
     Route: 048

REACTIONS (3)
  - DIARRHOEA [None]
  - LEUKOCYTOSIS [None]
  - MITRAL VALVE PROLAPSE [None]
